FAERS Safety Report 10229512 (Version 1)
Quarter: 2014Q2

REPORT INFORMATION
  Report Type: Spontaneous
  Country: CA (occurrence: CA)
  Receive Date: 20140611
  Receipt Date: 20140611
  Transmission Date: 20141212
  Serious: Yes (Other)
  Sender: FDA-Public Use
  Company Number: CA-AMGEN INC.-CANSP2014042342

PATIENT
  Sex: Female

DRUGS (5)
  1. NEULASTA [Suspect]
     Indication: PROPHYLAXIS
     Dosage: UNK
     Route: 065
  2. FLUOROURACIL [Concomitant]
     Dosage: UNK
     Dates: start: 20140516
  3. EPIRUBICIN [Concomitant]
     Dosage: UNK
     Dates: start: 20140516
  4. CYCLOPHOSPHAMIDE [Concomitant]
     Dosage: UNK
     Dates: start: 20140516
  5. DOCETAXEL [Concomitant]
     Dosage: UNK
     Dates: start: 20140516

REACTIONS (1)
  - Febrile neutropenia [Unknown]
